FAERS Safety Report 5085783-2 (Version None)
Quarter: 2006Q3

REPORT INFORMATION
  Report Type: 
  Country: None (occurrence: None)
  Receive Date: 20060816
  Receipt Date: 20060801
  Transmission Date: 20061208
  Serious: Yes (Other)
  Sender: FDA-Public Use
  Company Number: 2006VX000957

PATIENT
  Age: 68 Year
  Sex: Female
  Weight: 53.5 kg

DRUGS (5)
  1. TASMAR [Suspect]
     Indication: PARKINSON'S DISEASE
     Dosage: 100 MG; TID; PO
     Route: 048
     Dates: start: 20060301, end: 20060728
  2. L-DOPA [Concomitant]
  3. PROPRANOLOL [Concomitant]
  4. DOMPERIDONE [Concomitant]
  5. CARBIDOPA [Concomitant]

REACTIONS (1)
  - HEPATIC FAILURE [None]
